FAERS Safety Report 13072272 (Version 1)
Quarter: 2016Q4

REPORT INFORMATION
  Report Type: Spontaneous
  Country: US (occurrence: US)
  Receive Date: 20161229
  Receipt Date: 20161229
  Transmission Date: 20170207
  Serious: No
  Sender: FDA-Public Use
  Company Number: US-PRINSTON PHARMACEUTICAL INC.-2016PRN00352

PATIENT
  Age: 70 Year
  Sex: Male

DRUGS (8)
  1. DONEPEZIL. [Concomitant]
     Active Substance: DONEPEZIL
  2. VALSARTAN. [Suspect]
     Active Substance: VALSARTAN
     Indication: BLOOD PRESSURE MEASUREMENT
     Dosage: 320 MG, 1X/DAY
     Route: 048
     Dates: start: 20161204
  3. MYRBETRIQ [Concomitant]
     Active Substance: MIRABEGRON
  4. NORVASC [Concomitant]
     Active Substance: AMLODIPINE BESYLATE
  5. FINASTERIDE. [Concomitant]
     Active Substance: FINASTERIDE
  6. METFORMIN [Concomitant]
     Active Substance: METFORMIN HYDROCHLORIDE
  7. NAMENDA XR [Concomitant]
     Active Substance: MEMANTINE HYDROCHLORIDE
     Dosage: UNK, 1X/DAY
  8. FLOMAX [Concomitant]
     Active Substance: TAMSULOSIN HYDROCHLORIDE
     Dosage: UNK, 1X/DAY

REACTIONS (2)
  - Dizziness [Not Recovered/Not Resolved]
  - Blood pressure increased [Not Recovered/Not Resolved]

NARRATIVE: CASE EVENT DATE: 201612
